FAERS Safety Report 5142428-0 (Version None)
Quarter: 2006Q4

REPORT INFORMATION
  Report Type: 
  Country: None (occurrence: None)
  Receive Date: 20061030
  Receipt Date: 20061030
  Transmission Date: 20070319
  Serious: Yes (Other)
  Sender: FDA-Public Use
  Company Number: None

PATIENT
  Sex: Female

DRUGS (1)
  1. DURAGESIC-100 [Suspect]
     Indication: BREAST CANCER
     Dosage: 100MG  CHANGE Q72HOURS
     Dates: start: 20060301

REACTIONS (1)
  - NO ADVERSE EFFECT [None]
